FAERS Safety Report 8299087-8 (Version None)
Quarter: 2012Q2

REPORT INFORMATION
  Report Type: 
  Country: None (occurrence: None)
  Receive Date: 20120419
  Receipt Date: 20120416
  Transmission Date: 20120825
  Serious: Yes (Hospitalization)
  Sender: FDA-Public Use
  Company Number: US-TEVA-333827USA

PATIENT
  Age: 62 Year
  Sex: Male

DRUGS (6)
  1. RANOLAZINE [Interacting]
     Indication: MYOCARDIAL ISCHAEMIA
     Route: 065
  2. ENALAPRIL MALEATE [Concomitant]
     Dosage: 2.5 MILLIGRAM;
     Route: 065
  3. DILTIAZEM HCL [Suspect]
     Dosage: 240 MILLIGRAM;
     Route: 065
  4. PREDNISONE TAB [Concomitant]
     Route: 065
  5. TACROLIMUS [Interacting]
     Route: 065
  6. RANOLAZINE [Interacting]
     Route: 065

REACTIONS (6)
  - FATIGUE [None]
  - TREMOR [None]
  - DECREASED APPETITE [None]
  - SINUS BRADYCARDIA [None]
  - DRUG INTERACTION [None]
  - RENAL FAILURE ACUTE [None]
